FAERS Safety Report 13344938 (Version 2)
Quarter: 2017Q2

REPORT INFORMATION
  Report Type: Report from Study
  Country: FR (occurrence: FR)
  Receive Date: 20170317
  Receipt Date: 20170418
  Transmission Date: 20170830
  Serious: Yes (Hospitalization)
  Sender: FDA-Public Use
  Company Number: FR-AMGEN-FRACT2017037894

PATIENT
  Age: 48 Year
  Sex: Female

DRUGS (8)
  1. TAXOTERE [Suspect]
     Active Substance: DOCETAXEL
     Indication: BREAST CANCER
     Dosage: 178 MG, UNK
     Route: 065
     Dates: start: 20100518
  2. FEC [Concomitant]
     Active Substance: CYCLOPHOSPHAMIDE\EPIRUBICIN HYDROCHLORIDE\FLUOROURACIL
     Indication: BREAST CANCER
     Dosage: UNK
     Route: 065
     Dates: start: 20100223
  3. ALODONT [Concomitant]
     Active Substance: CETYLPYRIDINIUM CHLORIDE\CHLOROBUTANOL\EUGENOL
     Indication: PROPHYLAXIS
  4. RUBOZINC [Concomitant]
     Indication: SKIN TOXICITY
     Dosage: UNK
     Dates: start: 20100503
  5. ROZACREME [Concomitant]
     Indication: SKIN TOXICITY
     Dosage: UNK
     Dates: start: 20100330
  6. PANITUMUMAB [Suspect]
     Active Substance: PANITUMUMAB
     Indication: BREAST CANCER
     Dosage: 684 MG, UNK
     Route: 065
     Dates: start: 20100223
  7. BICARBONATE [Concomitant]
     Active Substance: BICARBONATE ION
  8. PANITUMUMAB [Suspect]
     Active Substance: PANITUMUMAB
     Dosage: 490 MG, UNK
     Route: 065
     Dates: start: 20100427

REACTIONS (4)
  - Acne pustular [Recovering/Resolving]
  - Febrile bone marrow aplasia [Recovered/Resolved]
  - Eczema [Recovered/Resolved]
  - Eye oedema [Recovered/Resolved]

NARRATIVE: CASE EVENT DATE: 20100620
